FAERS Safety Report 14166145 (Version 1)
Quarter: 2017Q4

REPORT INFORMATION
  Report Type: Spontaneous
  Country: US (occurrence: US)
  Receive Date: 20171106
  Receipt Date: 20171106
  Transmission Date: 20180321
  Serious: Yes (Death)
  Sender: FDA-Public Use
  Company Number: None

PATIENT
  Age: 56 Year
  Sex: Female

DRUGS (2)
  1. MORPHINE SULFATE CR [Concomitant]
     Active Substance: MORPHINE SULFATE
  2. ENOXAPARIN [Suspect]
     Active Substance: ENOXAPARIN
     Indication: VULVAL CANCER
     Route: 058

REACTIONS (1)
  - Death [None]
